FAERS Safety Report 4680735-6 (Version None)
Quarter: 2005Q2

REPORT INFORMATION
  Report Type: 
  Country: None (occurrence: None)
  Receive Date: 20050603
  Receipt Date: 20050526
  Transmission Date: 20051028
  Serious: Yes (Death, Life-Threatening, Hospitalization, Disabling)
  Sender: FDA-Public Use
  Company Number: IN-BOEHRINGER INGELHEIM PHARMACEUTICALS, INC.-2005-UK-00933UK

PATIENT
  Sex: Male
  Weight: 61 kg

DRUGS (5)
  1. AGGRENOX [Suspect]
     Indication: CEREBROVASCULAR ACCIDENT PROPHYLAXIS
     Dosage: 25/200MG
     Route: 048
     Dates: start: 20050516, end: 20050525
  2. MICARDIS (PROFESS STUDY 00015/0205/A) [Suspect]
     Indication: CEREBROVASCULAR ACCIDENT PROPHYLAXIS
     Route: 048
     Dates: start: 20050517, end: 20050525
  3. PLACEBO [Suspect]
     Indication: CEREBROVASCULAR ACCIDENT PROPHYLAXIS
     Route: 048
     Dates: start: 20050517, end: 20050525
  4. ENALAPRIL MALEATE [Suspect]
     Route: 048
     Dates: start: 20041119, end: 20050525
  5. METOPROLOL [Suspect]
     Route: 048
     Dates: start: 19950123, end: 20050525

REACTIONS (3)
  - ACUTE PULMONARY OEDEMA [None]
  - RENAL FAILURE [None]
  - URINARY TRACT INFECTION [None]
